FAERS Safety Report 5740452-8 (Version None)
Quarter: 2008Q2

REPORT INFORMATION
  Report Type: 
  Country: None (occurrence: None)
  Receive Date: 20080516
  Receipt Date: 20080505
  Transmission Date: 20081010
  Serious: Yes (Hospitalization)
  Sender: FDA-Public Use
  Company Number: FR-WYE-H04077708

PATIENT
  Sex: Female

DRUGS (11)
  1. PANTOPRAZOLE SODIUM [Suspect]
     Route: 048
     Dates: end: 20080103
  2. GLICLAZIDE [Concomitant]
  3. GLUCOPHAGE [Concomitant]
  4. CELLUVISC [Concomitant]
  5. URBANYL [Concomitant]
  6. LOVENOX [Concomitant]
  7. STER-DEX [Concomitant]
  8. TRILEPTAL [Suspect]
     Indication: EPILEPSY
     Route: 048
     Dates: start: 20071225, end: 20071226
  9. TRILEPTAL [Suspect]
     Route: 048
     Dates: start: 20071227, end: 20080120
  10. TRILEPTAL [Suspect]
     Dosage: ^PROGRESSIVELY STOPPED^
     Dates: start: 20080121, end: 20080215
  11. LIPANTHYL ^FOURNIER^ [Concomitant]

REACTIONS (2)
  - HYPONATRAEMIA [None]
  - STATUS EPILEPTICUS [None]
